FAERS Safety Report 11833071 (Version 2)
Quarter: 2016Q1

REPORT INFORMATION
  Report Type: Spontaneous
  Country: US (occurrence: US)
  Receive Date: 20151214
  Receipt Date: 20160307
  Transmission Date: 20160525
  Serious: Yes (Other)
  Sender: FDA-Public Use
  Company Number: US-SA-2015SA209508

PATIENT
  Sex: Female

DRUGS (2)
  1. NOVOLOG [Suspect]
     Active Substance: INSULIN ASPART
     Route: 065
  2. LANTUS [Suspect]
     Active Substance: INSULIN GLARGINE
     Route: 058

REACTIONS (1)
  - Pancreatitis [Unknown]
